FAERS Safety Report 9926161 (Version 2)
Quarter: 2014Q1

REPORT INFORMATION
  Report Type: Spontaneous
  Country: US (occurrence: US)
  Receive Date: 20140226
  Receipt Date: 20140319
  Transmission Date: 20141002
  Serious: No
  Sender: FDA-Public Use
  Company Number: US-009507513-1402USA012568

PATIENT
  Age: 88 Year
  Sex: Female
  Weight: 70.3 kg

DRUGS (6)
  1. MIRALAX [Suspect]
     Indication: CONSTIPATION
     Dosage: 17 G, QD
     Route: 048
     Dates: start: 20140210, end: 20140218
  2. CARVEDILOL [Concomitant]
     Indication: CARDIAC FAILURE CONGESTIVE
     Dosage: 3.125 MG, BID
  3. CYMBALTA [Concomitant]
     Indication: PAIN
     Dosage: 60 MG, QD
  4. CYMBALTA [Concomitant]
     Indication: DEPRESSION
  5. LIPITOR [Concomitant]
     Indication: BLOOD CHOLESTEROL
     Dosage: 2.5 MG, QD
  6. LASIX (FUROSEMIDE SODIUM) [Concomitant]
     Indication: OEDEMA
     Dosage: 40 MG, QD

REACTIONS (2)
  - Incorrect drug administration duration [Unknown]
  - Drug ineffective [Unknown]
